FAERS Safety Report 6540221-5 (Version None)
Quarter: 2010Q1

REPORT INFORMATION
  Report Type: 
  Country: None (occurrence: None)
  Receive Date: 20100115
  Receipt Date: 20100106
  Transmission Date: 20100710
  Serious: Yes (Disabling, Other)
  Sender: FDA-Public Use
  Company Number: DE-PFIZER INC-2009307550

PATIENT
  Age: 74 Year
  Sex: Female

DRUGS (6)
  1. LATANOPROST [Suspect]
     Indication: GLAUCOMA
     Dosage: 0.005 %, 1X/DAY
     Dates: start: 20000504, end: 20011031
  2. LATANOPROST [Suspect]
     Dosage: 0.005 %, 1X/DAY
     Dates: start: 20021212, end: 20040517
  3. LATANOPROST [Suspect]
     Dosage: 0.005 %, 1X/DAY
     Dates: start: 20041026, end: 20050404
  4. TIMOLOL [Concomitant]
     Indication: GLAUCOMA
     Dosage: 0.5 %, 2X/DAY
     Dates: start: 20000504, end: 20000504
  5. BRIMONIDINE [Concomitant]
     Indication: GLAUCOMA
     Dosage: 0.2 %, 2X/DAY
     Dates: start: 20000504, end: 20040517
  6. BRIMONIDINE [Concomitant]
     Dosage: 0.2 %, 2X/DAY
     Dates: start: 20041026, end: 20050404

REACTIONS (3)
  - ANOSMIA [None]
  - MACULAR OEDEMA [None]
  - MACULOPATHY [None]
